FAERS Safety Report 21924293 (Version 1)
Quarter: 2023Q1

REPORT INFORMATION
  Report Type: Report from Study
  Country: CH (occurrence: CH)
  Receive Date: 20230130
  Receipt Date: 20230130
  Transmission Date: 20230418
  Serious: Yes (Hospitalization)
  Sender: FDA-Public Use
  Company Number: CH-ABBVIE-4216311

PATIENT
  Age: 82 Year
  Sex: Female
  Weight: 77 kg

DRUGS (26)
  1. SKYRIZI [Suspect]
     Active Substance: RISANKIZUMAB-RZAA
     Indication: Psoriasis
     Route: 058
     Dates: start: 20220520
  2. DUPHALAC [Concomitant]
     Active Substance: LACTULOSE
     Indication: Product used for unknown indication
     Dosage: LACTULOSE (DUPHALAC SYRUP) FREQUENCY TEXT: 15 ML, MAX. 3X/24 H
  3. XULTOPHY 100/3.6 [Concomitant]
     Active Substance: INSULIN DEGLUDEC\LIRAGLUTIDE
     Indication: Product used for unknown indication
     Dosage: TIME INTERVAL: 0.02272727 DAYS: 100U/ML 3.6 MG/ML
  4. Movicol powder bag [Concomitant]
     Indication: Product used for unknown indication
  5. OXYCODONE HYDROCHLORIDE [Concomitant]
     Active Substance: OXYCODONE HYDROCHLORIDE
     Indication: Product used for unknown indication
     Dosage: 10 MG/ML FREQUENCY TEXT: 0.5 ML, MAX. 4X/24H
  6. ASPIRIN [Concomitant]
     Active Substance: ASPIRIN
     Indication: Product used for unknown indication
  7. insuline (Insulin Novo Rapid FlexPen) [Concomitant]
     Indication: Product used for unknown indication
  8. MOVICOL [Concomitant]
     Active Substance: POLYETHYLENE GLYCOL 3350\POTASSIUM CHLORIDE\SODIUM BICARBONATE\SODIUM CHLORIDE
     Indication: Product used for unknown indication
     Dosage: MOVICOL POWDER BAG
  9. FRAGMIN [Concomitant]
     Active Substance: DALTEPARIN SODIUM
     Indication: Product used for unknown indication
     Dosage: 5000 IU, 0.2 ML; 20:00 } 1 PIECE
  10. Cholecalciferolum (Vit. D3) + Calcium (Calcimagon D forte) [Concomitant]
     Indication: Product used for unknown indication
  11. LANTUS [Concomitant]
     Active Substance: INSULIN GLARGINE
     Indication: Product used for unknown indication
     Dosage: TIME INTERVAL: 0.02272727 DAYS
  12. insuline glargine (Lantus Solo Star) [Concomitant]
     Indication: Product used for unknown indication
     Dosage: TIME INTERVAL: 0.02272727 DAYS
  13. ATORVASTATIN [Concomitant]
     Active Substance: ATORVASTATIN
     Indication: Product used for unknown indication
  14. Calcimagon D3 Forte [Concomitant]
     Indication: Product used for unknown indication
  15. valsartran + hydrochlorothiazide (CO DIOVAN - Co-valsartan Sandoz) [Concomitant]
     Indication: Product used for unknown indication
     Dosage: 80/12.5 MG
  16. OTEZLA [Suspect]
     Active Substance: APREMILAST
     Indication: Psoriasis
     Dates: start: 20220225, end: 202204
  17. NOVALGIN (METAMIZOLE SODIUM) [Concomitant]
     Active Substance: METAMIZOLE SODIUM
     Indication: Product used for unknown indication
     Dosage: METAMIZOL-SODIUM (NOVAMINSULFON, DIPYRON) (NOVALGIN)?FREQUENCY TEXT: 2 - 2 - 2 - 2
  18. Insuline (XULTOPHY ) [Concomitant]
     Indication: Product used for unknown indication
     Dosage: TIME INTERVAL: 0.02272727 DAYS: 100U/ML 3.6 MG/ML
  19. MINERAL OIL [Concomitant]
     Active Substance: MINERAL OIL
     Indication: Product used for unknown indication
     Dosage: VISCOUS PARAFFI (PARAGOL N EMULSION)
  20. OTEZLA [Concomitant]
     Active Substance: APREMILAST
     Indication: Psoriasis
     Dates: start: 20220225, end: 202204
  21. NOVORAPID [Concomitant]
     Active Substance: INSULIN ASPART
     Indication: Product used for unknown indication
     Dosage: DETAILS ON DIABETES FORM PRODUCT
  22. insuline (INSULIN NOVORAPID) [Concomitant]
     Indication: Product used for unknown indication
     Dosage: 10 ML (100 U/ML)
  23. insuline (INSULIN NOVORAPID) [Concomitant]
     Indication: Product used for unknown indication
     Dosage: 10 ML (100 U/ML)  INSULINE (INSULIN NOVORAPID)
  24. Pantoprazole (Pantoprazole Viatris) [Concomitant]
     Indication: Product used for unknown indication
     Dosage: PANTOPRAZOLE (PANTOPRAZOLE VIATRIS)
  25. Oxycodonhydrochlorid und Naloxonhydrochlorid (Targin) [Concomitant]
     Indication: Product used for unknown indication
     Dosage: 5/2.5 MG FREQUENCY TEXT: 2 - 0 - 2 - 0 PIECES
     Dates: start: 202209
  26. PANTOZOL [Concomitant]
     Active Substance: PANTOPRAZOLE SODIUM
     Indication: Product used for unknown indication
     Dosage: PANTOPRAZOL (PANTOZOL)  FREQUENCY TEXT: 0.5-0 - 0 - 0

REACTIONS (9)
  - Ileus [Recovered/Resolved]
  - Thoracic vertebral fracture [Recovered/Resolved]
  - Fall [Recovered/Resolved]
  - Back pain [Unknown]
  - Vomiting [Recovered/Resolved]
  - Myalgia [Unknown]
  - Insomnia [Unknown]
  - Pain [Unknown]
  - Abdominal pain [Recovered/Resolved]

NARRATIVE: CASE EVENT DATE: 20220101
